FAERS Safety Report 11281976 (Version 2)
Quarter: 2016Q3

REPORT INFORMATION
  Report Type: Report from Study
  Country: US (occurrence: US)
  Receive Date: 20150718
  Receipt Date: 20160706
  Transmission Date: 20161109
  Serious: No
  Sender: FDA-Public Use
  Company Number: PHEH2015US013456

PATIENT
  Sex: Female

DRUGS (1)
  1. EXJADE [Suspect]
     Active Substance: DEFERASIROX
     Indication: PRODUCT USED FOR UNKNOWN INDICATION
     Dosage: 250 MG, UNK, DISPERSE 5 TABLETS IN 7 OUNCES OF WATER BY STIRRING AND DRINK ONE TIME A DAY
     Route: 048
     Dates: start: 20150126, end: 20150706

REACTIONS (1)
  - Maternal exposure during pregnancy [Unknown]
